FAERS Safety Report 21936359 (Version 1)
Quarter: 2023Q1

REPORT INFORMATION
  Report Type: Spontaneous
  Country: US (occurrence: None)
  Receive Date: 20230131
  Receipt Date: 20230131
  Transmission Date: 20230418
  Serious: Yes (Other)
  Sender: FDA-Public Use
  Company Number: None

PATIENT
  Sex: Female

DRUGS (1)
  1. PROLIA [Suspect]
     Active Substance: DENOSUMAB
     Indication: Senile osteoporosis
     Dosage: 60 MG/ML SUBCUTANEOUS??INJECT 60 MG UNDER THE SKIN (SUBCUTANEOUS INJECTION) EVERY 6 MONTHS?
     Route: 058
     Dates: start: 20211123

REACTIONS (2)
  - Breast cancer [None]
  - Cerebrovascular accident [None]
